FAERS Safety Report 15745826 (Version 2)
Quarter: 2019Q1

REPORT INFORMATION
  Report Type: Spontaneous
  Country: AT (occurrence: AT)
  Receive Date: 20181220
  Receipt Date: 20190118
  Transmission Date: 20190417
  Serious: Yes (Death, Life-Threatening, Hospitalization, Other)
  Sender: FDA-Public Use
  Company Number: AT-BRISTOL-MYERS SQUIBB COMPANY-BMS-2018-098579

PATIENT
  Age: 78 Year
  Sex: Female

DRUGS (1)
  1. NIVOLUMAB [Suspect]
     Active Substance: NIVOLUMAB
     Indication: PRODUCT USED FOR UNKNOWN INDICATION
     Dosage: 240 MG, Q2WK
     Route: 065
     Dates: start: 20180818

REACTIONS (15)
  - Acute kidney injury [Unknown]
  - Pneumonia [Unknown]
  - Pneumonitis [Recovering/Resolving]
  - Pulmonary hypertension [Unknown]
  - Circulatory collapse [Fatal]
  - Interstitial lung disease [Unknown]
  - Pulmonary fibrosis [Unknown]
  - Cardiac failure [Unknown]
  - Escherichia sepsis [Unknown]
  - Pseudomonas test positive [Unknown]
  - Alveolitis allergic [Unknown]
  - Pleural effusion [Unknown]
  - Oral herpes [Unknown]
  - Asthenia [Unknown]
  - General physical health deterioration [Unknown]

NARRATIVE: CASE EVENT DATE: 20181018
